FAERS Safety Report 16359039 (Version 3)
Quarter: 2021Q1

REPORT INFORMATION
  Report Type: Spontaneous
  Country: US (occurrence: US)
  Receive Date: 20190527
  Receipt Date: 20210106
  Transmission Date: 20210419
  Serious: No
  Sender: FDA-Public Use
  Company Number: US-SA-2019SA139152

PATIENT

DRUGS (6)
  1. TRETINOIN. [Concomitant]
     Active Substance: TRETINOIN
  2. PIMECROLIMUS. [Concomitant]
     Active Substance: PIMECROLIMUS
  3. DUPIXENT [Suspect]
     Active Substance: DUPILUMAB
     Dosage: 200 MG/ML, QOW
     Route: 058
     Dates: start: 201905
  4. DOXEPIN HYDROCHLORIDE. [Concomitant]
     Active Substance: DOXEPIN HYDROCHLORIDE
  5. FLUOCINONIDE. [Concomitant]
     Active Substance: FLUOCINONIDE
  6. DUPIXENT [Suspect]
     Active Substance: DUPILUMAB
     Indication: NEURODERMATITIS
     Dosage: 400 MG, 1X
     Route: 058
     Dates: start: 20190507, end: 20190507

REACTIONS (3)
  - Neurodermatitis [Not Recovered/Not Resolved]
  - COVID-19 [Unknown]
  - Eye disorder [Not Recovered/Not Resolved]

NARRATIVE: CASE EVENT DATE: 2019
